FAERS Safety Report 17132609 (Version 1)
Quarter: 2019Q4

REPORT INFORMATION
  Report Type: Spontaneous
  Country: US (occurrence: US)
  Receive Date: 20191210
  Receipt Date: 20191210
  Transmission Date: 20200122
  Serious: Yes (Other)
  Sender: FDA-Public Use
  Company Number: US-SA-2019SA336961

PATIENT
  Sex: Male

DRUGS (1)
  1. GOLD BOND ORIGINAL STRENGTH POWDER [Suspect]
     Active Substance: MENTHOL\ZINC OXIDE
     Dosage: UNK

REACTIONS (5)
  - Injury [Unknown]
  - Occupational exposure to product [Unknown]
  - Pain [Unknown]
  - Mental disorder [Unknown]
  - Mesothelioma malignant [Unknown]

NARRATIVE: CASE EVENT DATE: 20190906
